FAERS Safety Report 23389534 (Version 1)
Quarter: 2024Q1

REPORT INFORMATION
  Report Type: Spontaneous
  Country: FR (occurrence: FR)
  Receive Date: 20240110
  Receipt Date: 20240110
  Transmission Date: 20240410
  Serious: Yes (Life-Threatening)
  Sender: FDA-Public Use
  Company Number: None

PATIENT
  Age: 75 Year
  Sex: Male
  Weight: 70 kg

DRUGS (3)
  1. CYCLOPHOSPHAMIDE [Suspect]
     Active Substance: CYCLOPHOSPHAMIDE
     Indication: Chronic lymphocytic leukaemia
     Dosage: 6 CURES
     Route: 042
     Dates: start: 201010, end: 201103
  2. FLUDARABINE PHOSPHATE [Suspect]
     Active Substance: FLUDARABINE PHOSPHATE
     Indication: Chronic lymphocytic leukaemia
     Dosage: 3 CURES
     Route: 042
     Dates: start: 201010, end: 201103
  3. RITUXIMAB [Suspect]
     Active Substance: RITUXIMAB
     Indication: Chronic lymphocytic leukaemia
     Dosage: 6 CURES
     Route: 042
     Dates: start: 201010, end: 201103

REACTIONS (2)
  - Transitional cell carcinoma [Not Recovered/Not Resolved]
  - Neuroendocrine carcinoma of the bladder [Not Recovered/Not Resolved]

NARRATIVE: CASE EVENT DATE: 20230321
